FAERS Safety Report 7744169-X (Version None)
Quarter: 2011Q3

REPORT INFORMATION
  Report Type: 
  Country: None (occurrence: None)
  Receive Date: 20110912
  Receipt Date: 20110907
  Transmission Date: 20111222
  Serious: No
  Sender: FDA-Public Use
  Company Number: US-PFIZER INC-2011169664

PATIENT
  Sex: Female

DRUGS (2)
  1. GEODON [Suspect]
     Route: 048
  2. GEODON [Suspect]
     Dosage: 80 MG, UNK
     Route: 048

REACTIONS (2)
  - SOMNOLENCE [None]
  - WEIGHT INCREASED [None]
